FAERS Safety Report 25718542 (Version 2)
Quarter: 2025Q3

REPORT INFORMATION
  Report Type: Spontaneous
  Country: US (occurrence: US)
  Receive Date: 20250823
  Receipt Date: 20250829
  Transmission Date: 20251020
  Serious: Yes (Other)
  Sender: JOHNSON AND JOHNSON
  Company Number: US-JNJFOC-20250817321

PATIENT

DRUGS (1)
  1. CARVYKTI [Suspect]
     Active Substance: CILTACABTAGENE AUTOLEUCEL
     Indication: Product used for unknown indication
     Route: 065
     Dates: start: 20250618, end: 20250618

REACTIONS (4)
  - Cytokine release syndrome [Unknown]
  - Cranial nerve paralysis [Unknown]
  - Lymphocyte count increased [Unknown]
  - Constipation [Recovering/Resolving]
